FAERS Safety Report 5124310-8 (Version None)
Quarter: 2006Q4

REPORT INFORMATION
  Report Type: 
  Country: None (occurrence: None)
  Receive Date: 20061010
  Receipt Date: 20060802
  Transmission Date: 20070319
  Serious: Yes (Other)
  Sender: FDA-Public Use
  Company Number: BE-BOEHRINGER INGELHEIM PHARMACEUTICALS, INC.-2006-DE-04172BY

PATIENT
  Sex: Female

DRUGS (2)
  1. KINZALMONO [Suspect]
     Indication: HYPERTENSION
     Route: 048
  2. LOSARTAN POSTASSIUM [Concomitant]
     Route: 065

REACTIONS (2)
  - EPISTAXIS [None]
  - NASAL CONGESTION [None]
